FAERS Safety Report 5592479-7 (Version None)
Quarter: 2007Q4

REPORT INFORMATION
  Report Type: 
  Country: None (occurrence: None)
  Receive Date: 20071217
  Receipt Date: 20071004
  Transmission Date: 20080405
  Serious: No
  Sender: FDA-Public Use
  Company Number: BDI-010284

PATIENT
  Age: 76 Year
  Sex: Female
  Weight: 65 kg

DRUGS (6)
  1. MULTIHANCE [Suspect]
     Indication: NUCLEAR MAGNETIC RESONANCE IMAGING
     Dosage: 13 ML ONCE IV
     Route: 042
     Dates: start: 20071004, end: 20071004
  2. MULTIHANCE [Suspect]
     Indication: PAIN
     Dosage: 13 ML ONCE IV
     Route: 042
     Dates: start: 20071004, end: 20071004
  3. MULTIHANCE [Suspect]
     Indication: NUCLEAR MAGNETIC RESONANCE IMAGING
     Dosage: 13 ML ONCE IV
     Route: 042
     Dates: start: 20071004, end: 20071004
  4. MULTIHANCE [Suspect]
     Indication: PAIN
     Dosage: 13 ML ONCE IV
     Route: 042
     Dates: start: 20071004, end: 20071004
  5. LIPITOR /01326101/ [Concomitant]
  6. ACTONEL [Concomitant]

REACTIONS (1)
  - HYPERSENSITIVITY [None]
